FAERS Safety Report 15822497 (Version 1)
Quarter: 2019Q1

REPORT INFORMATION
  Report Type: Spontaneous
  Country: ES (occurrence: ES)
  Receive Date: 20190114
  Receipt Date: 20190114
  Transmission Date: 20190417
  Serious: Yes (Life-Threatening, Hospitalization)
  Sender: FDA-Public Use
  Company Number: ES-ASTRAZENECA-2019SE04896

PATIENT
  Age: 67 Year
  Sex: Female

DRUGS (4)
  1. LYRICA [Interacting]
     Active Substance: PREGABALIN
     Indication: SUICIDE ATTEMPT
     Dosage: 7 CPS1050.0MG ONCE/SINGLE ADMINISTRATION
     Route: 048
     Dates: start: 20180222, end: 20180222
  2. LORAZEPAM. [Interacting]
     Active Substance: LORAZEPAM
     Dosage: 7 CPS7.0MG ONCE/SINGLE ADMINISTRATION
     Route: 048
     Dates: start: 20180222, end: 20180222
  3. SEROQUEL [Suspect]
     Active Substance: QUETIAPINE FUMARATE
     Indication: SUICIDE ATTEMPT
     Dosage: 5 CPS
     Route: 048
     Dates: start: 20180222, end: 20180222
  4. LAMICTAL [Interacting]
     Active Substance: LAMOTRIGINE
     Indication: SUICIDE ATTEMPT
     Dosage: 5 CPS500.0MG ONCE/SINGLE ADMINISTRATION
     Route: 048
     Dates: start: 20180222, end: 20180222

REACTIONS (2)
  - Rhabdomyolysis [Recovered/Resolved]
  - Acute kidney injury [Recovered/Resolved]

NARRATIVE: CASE EVENT DATE: 20180222
